FAERS Safety Report 11132233 (Version 5)
Quarter: 2015Q3

REPORT INFORMATION
  Report Type: Report from Study
  Country: IT (occurrence: IT)
  Receive Date: 20150522
  Receipt Date: 20150701
  Transmission Date: 20151125
  Serious: Yes (Other)
  Sender: FDA-Public Use
  Company Number: IT-PFIZER INC-2015171381

PATIENT
  Age: 76 Year
  Sex: Female
  Weight: 70 kg

DRUGS (3)
  1. COUMADIN [Concomitant]
     Active Substance: WARFARIN SODIUM
     Dosage: UNK, AS NEEDED
     Route: 048
  2. XALKORI [Suspect]
     Active Substance: CRIZOTINIB
     Indication: NON-SMALL CELL LUNG CANCER
     Dosage: 250 MG, 2X/DAY
     Route: 048
     Dates: start: 20121023, end: 20150410
  3. CALCIUM +D3 [Concomitant]
     Active Substance: CALCIUM\CHOLECALCIFEROL
     Indication: OSTEOPOROSIS
     Dosage: 500 MG, 1X/DAY
     Route: 048

REACTIONS (1)
  - Retinal ischaemia [Unknown]

NARRATIVE: CASE EVENT DATE: 20150410
